FAERS Safety Report 14602017 (Version 2)
Quarter: 2018Q1

REPORT INFORMATION
  Report Type: Spontaneous
  Country: RO (occurrence: RO)
  Receive Date: 20180306
  Receipt Date: 20180321
  Transmission Date: 20180509
  Serious: Yes (Death, Hospitalization)
  Sender: FDA-Public Use
  Company Number: RO-KADMON PHARMACEUTICALS, LLC-KAD-201802-01241

PATIENT
  Age: 55 Year
  Sex: Male
  Weight: 72 kg

DRUGS (4)
  1. RIBAVIRIN. [Suspect]
     Active Substance: RIBAVIRIN
     Indication: HEPATITIS C
     Dosage: TABLET
     Route: 048
  2. HARVONI [Suspect]
     Active Substance: LEDIPASVIR\SOFOSBUVIR
     Route: 048
  3. ARGININE-SORBITOL [Concomitant]
     Indication: HEPATIC CIRRHOSIS
     Dates: start: 20180131, end: 20180131
  4. GLUCOSE [Concomitant]
     Active Substance: DEXTROSE
     Indication: HEPATIC CIRRHOSIS
     Dates: start: 20180131, end: 20180131

REACTIONS (1)
  - General physical condition abnormal [Fatal]

NARRATIVE: CASE EVENT DATE: 20180131
